FAERS Safety Report 5197746-7 (Version None)
Quarter: 2006Q4

REPORT INFORMATION
  Report Type: 
  Country: None (occurrence: None)
  Receive Date: 20061227
  Receipt Date: 20061212
  Transmission Date: 20070319
  Serious: Yes (Hospitalization)
  Sender: FDA-Public Use
  Company Number: 2006133572

PATIENT
  Age: 28 Year
  Sex: Female
  Weight: 33 kg

DRUGS (4)
  1. GENOTROPIN [Suspect]
     Indication: HYPOPITUITARISM
     Dosage: 0.3 MG (0.3 MG, FREQUENCY: QD INTERVAL: EVERY DAY) SUBCUTANEOUS
     Route: 058
     Dates: start: 19940101, end: 19970101
  2. GENOTROPIN [Suspect]
     Indication: HYPOPITUITARISM
     Dosage: 0.3 MG (0.3 MG, FREQUENCY: QD INTERVAL: EVERY DAY) SUBCUTANEOUS
     Route: 058
     Dates: start: 20000214, end: 20060420
  3. LEVOTHYROXINE SODIUM [Concomitant]
  4. CORTISONACETAT (CORTISONE ACETATE) [Concomitant]

REACTIONS (1)
  - HAEMANGIOMA [None]
